FAERS Safety Report 5579342-2 (Version None)
Quarter: 2007Q4

REPORT INFORMATION
  Report Type: 
  Country: None (occurrence: None)
  Receive Date: 20071221
  Receipt Date: 20071213
  Transmission Date: 20080405
  Serious: Yes (Death)
  Sender: FDA-Public Use
  Company Number: 2007337824

PATIENT
  Age: 37 Year
  Sex: Female

DRUGS (9)
  1. GUAIFENESIN/PHENYLEPHRINE (PHENYLEPHRINE, GUAIFENESIN) [Suspect]
     Indication: COMPLETED SUICIDE
     Dosage: GUAIFENESIN 400 MG/ PHENYLEPHERINE 15 MG, ORAL
     Route: 048
  2. VENLAFAXINE HCL [Suspect]
     Indication: COMPLETED SUICIDE
     Dosage: ORAL
     Route: 048
  3. ACETAMINOPHEN AND HYDROCODONE BITARTRATE [Suspect]
     Indication: COMPLETED SUICIDE
     Dosage: ACETAMINOPHEN 500MG/15ML, ORAL
     Route: 048
  4. METFORMIN (METFORMIN) [Suspect]
     Indication: COMPLETED SUICIDE
     Dosage: ORAL
     Route: 048
  5. DIAZEPAM [Suspect]
     Indication: COMPLETED SUICIDE
     Dosage: ORAL
     Route: 048
  6. GLIPIZIDE [Suspect]
     Indication: COMPLETED SUICIDE
     Dosage: ORAL
     Route: 048
  7. GABAPENTIN [Suspect]
     Indication: COMPLETED SUICIDE
     Dosage: (100 MCG), ORAL
     Route: 048
  8. RAMIPRIL [Suspect]
     Indication: COMPLETED SUICIDE
     Dosage: (1.25 MCG), ORAL
     Route: 048
  9. RAMIPRIL [Suspect]
     Indication: COMPLETED SUICIDE
     Dosage: (1.25 MCG), ORAL
     Route: 048

REACTIONS (9)
  - BLOOD GLUCOSE DECREASED [None]
  - BLOOD PH DECREASED [None]
  - COMA [None]
  - COMPLETED SUICIDE [None]
  - DEPRESSED LEVEL OF CONSCIOUSNESS [None]
  - DRUG TOXICITY [None]
  - HYPERKALAEMIA [None]
  - HYPOTENSION [None]
  - RESPIRATORY DEPRESSION [None]
